FAERS Safety Report 6120894-1 (Version None)
Quarter: 2009Q1

REPORT INFORMATION
  Report Type: 
  Country: None (occurrence: None)
  Receive Date: 20090317
  Receipt Date: 20090305
  Transmission Date: 20090719
  Serious: Yes (Hospitalization, Congenital Anomaly)
  Sender: FDA-Public Use
  Company Number: GB-TEVA-187032ISR

PATIENT

DRUGS (1)
  1. GABAPENTIN [Suspect]
     Route: 064
     Dates: start: 20081218, end: 20090122

REACTIONS (1)
  - CONGENITAL ABSENCE OF CRANIAL VAULT [None]
